FAERS Safety Report 15531837 (Version 3)
Quarter: 2019Q1

REPORT INFORMATION
  Report Type: Report from Study
  Country: None (occurrence: BR)
  Receive Date: 20181019
  Receipt Date: 20190130
  Transmission Date: 20190417
  Serious: Yes (Hospitalization, Other)
  Sender: FDA-Public Use
  Company Number: BR-ABBVIE-18K-020-2523121-00

PATIENT
  Age: 37 Year
  Sex: Male
  Weight: 110 kg

DRUGS (5)
  1. AZATHIOPRINE. [Concomitant]
     Active Substance: AZATHIOPRINE
     Indication: CROHN^S DISEASE
     Dates: start: 20150801
  2. HUMIRA [Suspect]
     Active Substance: ADALIMUMAB
     Dosage: WEEK 2
     Route: 058
     Dates: start: 201706, end: 201706
  3. HUMIRA [Suspect]
     Active Substance: ADALIMUMAB
     Indication: CROHN^S DISEASE
     Dosage: WEEK 0
     Route: 058
     Dates: start: 20170602, end: 20170602
  4. HUMIRA [Suspect]
     Active Substance: ADALIMUMAB
     Route: 058
  5. HUMIRA [Suspect]
     Active Substance: ADALIMUMAB
     Route: 058
     Dates: start: 20190122

REACTIONS (8)
  - Intestinal stenosis [Recovering/Resolving]
  - Inflammatory bowel disease [Recovered/Resolved]
  - Gastrointestinal inflammation [Recovered/Resolved]
  - Sinusitis [Unknown]
  - Jejunal stenosis [Unknown]
  - Intestinal obstruction [Recovered/Resolved]
  - Gastrointestinal inflammation [Recovering/Resolving]
  - Malaise [Recovering/Resolving]

NARRATIVE: CASE EVENT DATE: 201708
